FAERS Safety Report 9211586 (Version 2)
Quarter: 2013Q2

REPORT INFORMATION
  Report Type: Spontaneous
  Country: US (occurrence: US)
  Receive Date: 20130404
  Receipt Date: 20130506
  Transmission Date: 20140414
  Serious: No
  Sender: FDA-Public Use
  Company Number: US-AMGEN-USASP2013019107

PATIENT
  Age: 70 Year
  Sex: Female
  Weight: 82.99 kg

DRUGS (15)
  1. ENBREL [Suspect]
     Indication: PSORIATIC ARTHROPATHY
     Dosage: 50 MG, WEEKLY
     Route: 058
     Dates: start: 20130306
  2. RESTASIS [Concomitant]
     Dosage: UNK
  3. AMBIEN [Concomitant]
     Dosage: 10 MG, UNK
  4. CELEBREX [Concomitant]
     Dosage: 50 MG, UNK
  5. ZOLOFT [Concomitant]
     Dosage: 100 MG, UNK
  6. SYNTHROID [Concomitant]
     Dosage: 100 MCG, UNK
  7. METFORMIN [Concomitant]
     Dosage: 1000 MG, UNK
  8. ZINC [Concomitant]
     Dosage: 50 MG, UNK
  9. FISH OIL [Concomitant]
     Dosage: UNK
  10. VITAMIN D /00107901/ [Concomitant]
     Dosage: 1000 UNIT, UNK
  11. VITAMIN B COMPLEX PLUS [Concomitant]
     Dosage: UNK
  12. OSTEO BI-FLEX [Concomitant]
     Dosage: UNK
  13. MULTIVITAMINS, PLAIN [Concomitant]
     Dosage: UNK
  14. CALCIUM MAGNESIUM                  /01412301/ [Concomitant]
     Dosage: UNK
  15. MICARDIS [Concomitant]
     Dosage: 20 MG, UNK

REACTIONS (3)
  - Injection site erythema [Not Recovered/Not Resolved]
  - Injection site warmth [Not Recovered/Not Resolved]
  - Injection site reaction [Unknown]
